FAERS Safety Report 20752606 (Version 1)
Quarter: 2022Q2

REPORT INFORMATION
  Report Type: Spontaneous
  Country: US (occurrence: None)
  Receive Date: 20220426
  Receipt Date: 20220426
  Transmission Date: 20220721
  Serious: No
  Sender: FDA-Public Use
  Company Number: US-ROCHE-2875169

PATIENT
  Sex: Female

DRUGS (3)
  1. ESBRIET [Suspect]
     Active Substance: PIRFENIDONE
     Indication: Idiopathic pulmonary fibrosis
     Dosage: 1 (267 MG) TABS THREE TIMES DAILY
     Route: 048
     Dates: start: 202106
  2. ESBRIET [Suspect]
     Active Substance: PIRFENIDONE
     Dosage: 2 (267 MG) TABS THREE TIMES DAILY
     Route: 048
  3. ESBRIET [Suspect]
     Active Substance: PIRFENIDONE
     Dosage: 3 (267 MG) TABS THREE TIMES DAILY
     Route: 048

REACTIONS (1)
  - Nausea [Not Recovered/Not Resolved]
